FAERS Safety Report 13005919 (Version 1)
Quarter: 2016Q4

REPORT INFORMATION
  Report Type: Report from Study
  Country: US (occurrence: US)
  Receive Date: 20161207
  Receipt Date: 20161207
  Transmission Date: 20170207
  Serious: No
  Sender: FDA-Public Use
  Company Number: US-LANTHEUS-LMI-2016-00229

PATIENT
  Sex: Male

DRUGS (2)
  1. NEUROLITE [Suspect]
     Active Substance: BICISATE DIHYDROCHLORIDE
     Indication: SCAN BRAIN
     Route: 042
  2. DEXTROSE. [Concomitant]
     Active Substance: DEXTROSE
     Route: 042

REACTIONS (1)
  - Drug ineffective [Unknown]
